FAERS Safety Report 4385873-3 (Version None)
Quarter: 2004Q2

REPORT INFORMATION
  Report Type: 
  Country: None (occurrence: None)
  Receive Date: 20040628
  Receipt Date: 20040623
  Transmission Date: 20050107
  Serious: Yes (Other)
  Sender: FDA-Public Use
  Company Number: US-GLAXOSMITHKLINE-A0515748A

PATIENT
  Age: 34 Year
  Sex: Female

DRUGS (3)
  1. LAMICTAL [Suspect]
     Indication: EPILEPSY
     Dosage: 450MG PER DAY
     Route: 048
     Dates: start: 20030101
  2. TRILEPTAL [Concomitant]
  3. ELMIRON [Concomitant]

REACTIONS (4)
  - DEAFNESS [None]
  - EAR PAIN [None]
  - PHARYNGOLARYNGEAL PAIN [None]
  - TINNITUS [None]
